FAERS Safety Report 6417796-X (Version None)
Quarter: 2009Q4

REPORT INFORMATION
  Report Type: 
  Country: None (occurrence: None)
  Receive Date: 20091027
  Receipt Date: 20091027
  Transmission Date: 20100525
  Serious: Yes (Life-Threatening)
  Sender: FDA-Public Use
  Company Number: None

PATIENT
  Age: 75 Year
  Sex: Male
  Weight: 94.6 kg

DRUGS (15)
  1. HEPARIN [Suspect]
     Indication: COAGULATION TEST ABNORMAL
     Dosage: 1000U/HR IV
     Route: 042
     Dates: start: 20090921, end: 20090923
  2. ASPIRIN [Concomitant]
  3. BISACODYL [Concomitant]
  4. CEPHALEXIN [Concomitant]
  5. DOCUSATE [Concomitant]
  6. FUROSEMIDE [Concomitant]
  7. ASPART [Concomitant]
  8. LACTULOSE [Concomitant]
  9. LANSOPRAZOLE [Concomitant]
  10. LEVOTHYROXINE SODIUM [Concomitant]
  11. LISINOPRIL [Concomitant]
  12. METOPROLOL [Concomitant]
  13. MORPHINE [Concomitant]
  14. KAYEXALATE [Concomitant]
  15. SIMVASTATIN [Concomitant]

REACTIONS (5)
  - ABDOMINAL PAIN [None]
  - ACTIVATED PARTIAL THROMBOPLASTIN TIME PROLONGED [None]
  - BLOOD POTASSIUM INCREASED [None]
  - HAEMATOMA [None]
  - HAEMOGLOBIN DECREASED [None]
